FAERS Safety Report 12246682 (Version 2)
Quarter: 2016Q2

REPORT INFORMATION
  Report Type: Spontaneous
  Country: US (occurrence: US)
  Receive Date: 20160407
  Receipt Date: 20160512
  Transmission Date: 20160815
  Serious: Yes (Other)
  Sender: FDA-Public Use
  Company Number: US-ASTELLAS-2016US013276

PATIENT
  Sex: Male

DRUGS (2)
  1. MARIJUANA [Concomitant]
     Active Substance: CANNABIS SATIVA SUBSP. INDICA TOP
     Indication: PRODUCT USED FOR UNKNOWN INDICATION
     Dosage: UNK UNK, UNKNOWN FREQ.
     Route: 065
  2. XTANDI [Suspect]
     Active Substance: ENZALUTAMIDE
     Indication: PROSTATE CANCER
     Route: 048
     Dates: start: 20151119

REACTIONS (5)
  - Neck surgery [Unknown]
  - Throat irritation [Recovering/Resolving]
  - Cough [Recovering/Resolving]
  - Dysphagia [Recovering/Resolving]
  - Rash [Unknown]
